FAERS Safety Report 16168897 (Version 1)
Quarter: 2019Q2

REPORT INFORMATION
  Report Type: Spontaneous
  Country: BR (occurrence: BR)
  Receive Date: 20190408
  Receipt Date: 20190408
  Transmission Date: 20190711
  Serious: Yes (Hospitalization, Other)
  Sender: FDA-Public Use
  Company Number: BR-TORRENT-00004917

PATIENT
  Age: 35 Year
  Sex: Female
  Weight: 97 kg

DRUGS (3)
  1. ZETRON XL [Concomitant]
     Indication: ANXIETY
     Dosage: ONE TABLET DAILY
     Route: 048
     Dates: start: 2013
  2. LAMITOR CD [Suspect]
     Active Substance: LAMOTRIGINE
     Indication: BIPOLAR DISORDER
     Dosage: 1 TABLET DAILY FOR FIRST 6 DAYS FOLLOWED BY 2 TABLETS DAILY, UNTIL THE DOSE OF 3 TABLETS DAILY
     Route: 048
     Dates: start: 20190314, end: 20190325
  3. DIVALCON ER [Concomitant]
     Active Substance: DIVALPROEX SODIUM
     Indication: ANXIETY
     Dosage: ONE TABLET DAILY
     Route: 048
     Dates: start: 2013

REACTIONS (4)
  - Erythema [Not Recovered/Not Resolved]
  - Pyrexia [Unknown]
  - Laryngospasm [Recovered/Resolved]
  - Stevens-Johnson syndrome [Not Recovered/Not Resolved]

NARRATIVE: CASE EVENT DATE: 20190324
